FAERS Safety Report 24154096 (Version 1)
Quarter: 2024Q3

REPORT INFORMATION
  Report Type: Spontaneous
  Country: ES (occurrence: ES)
  Receive Date: 20240730
  Receipt Date: 20240730
  Transmission Date: 20241017
  Serious: Yes (Life-Threatening)
  Sender: TEVA
  Company Number: ES-TEVA-VS-3223997

PATIENT
  Age: 60 Year
  Sex: Male

DRUGS (1)
  1. OXALIPLATIN [Suspect]
     Active Substance: OXALIPLATIN
     Indication: Colorectal cancer
     Dosage: RECEIVED 20 CYCLES
     Route: 065

REACTIONS (3)
  - Immune system disorder [Unknown]
  - Type II hypersensitivity [Unknown]
  - Immune thrombocytopenia [Unknown]
